FAERS Safety Report 6089110-3 (Version None)
Quarter: 2009Q1

REPORT INFORMATION
  Report Type: 
  Country: None (occurrence: None)
  Receive Date: 20090224
  Receipt Date: 20090212
  Transmission Date: 20090719
  Serious: Yes (Hospitalization)
  Sender: FDA-Public Use
  Company Number: FR-ROCHE-614496

PATIENT
  Sex: Female

DRUGS (3)
  1. INVIRASE [Suspect]
     Route: 048
     Dates: start: 20051001
  2. EPIVIR [Suspect]
     Dosage: FORM: COATED TABLET
     Route: 048
     Dates: start: 20051001
  3. KALETRA [Suspect]
     Route: 048
     Dates: start: 20051001

REACTIONS (1)
  - PORTAL VEIN THROMBOSIS [None]
